FAERS Safety Report 20986248 (Version 1)
Quarter: 2022Q2

REPORT INFORMATION
  Report Type: Spontaneous
  Country: US (occurrence: None)
  Receive Date: 20220621
  Receipt Date: 20220621
  Transmission Date: 20220721
  Serious: No
  Sender: FDA-Public Use
  Company Number: US-ROCHE-3073105

PATIENT
  Sex: Female

DRUGS (1)
  1. XELODA [Suspect]
     Active Substance: CAPECITABINE
     Indication: Breast cancer
     Dosage: STRENGTH: 500MG
     Route: 048

REACTIONS (4)
  - Dry skin [Unknown]
  - Dry skin [Unknown]
  - Tongue dry [Unknown]
  - Dry skin [Unknown]
